FAERS Safety Report 8848753 (Version 1)
Quarter: 2012Q4

REPORT INFORMATION
  Report Type: 
  Country: US (occurrence: US)
  Receive Date: 20121018
  Receipt Date: 20121018
  Transmission Date: 20130627
  Serious: Yes (Hospitalization)
  Sender: FDA-Public Use
  Company Number: US-009507513-1210USA008363

PATIENT

DRUGS (1)
  1. NUVARING [Suspect]
     Dosage: UNK
     Route: 067
     Dates: start: 20060509, end: 20060626

REACTIONS (2)
  - Premature labour [Recovered/Resolved]
  - Maternal exposure before pregnancy [Recovered/Resolved]
